FAERS Safety Report 23674410 (Version 4)
Quarter: 2024Q3

REPORT INFORMATION
  Report Type: Spontaneous
  Country: US (occurrence: US)
  Receive Date: 20240326
  Receipt Date: 20240709
  Transmission Date: 20241017
  Serious: No
  Sender: PFIZER
  Company Number: US-PFIZER INC-202400071772

PATIENT
  Age: 74 Year
  Sex: Female

DRUGS (10)
  1. IBRANCE [Suspect]
     Active Substance: PALBOCICLIB
     Dosage: 125MG TABLET 1 TABLET BY MOUTH DAILY FOR 21 DAYS, THEN OFF FOR 7 DAYS
     Route: 048
     Dates: start: 20240313
  2. IBRANCE [Suspect]
     Active Substance: PALBOCICLIB
     Dosage: UNK
  3. ATORVASTATIN CALCIUM [Concomitant]
     Active Substance: ATORVASTATIN CALCIUM
     Dosage: UNK
  4. CARVEDILOL [Concomitant]
     Active Substance: CARVEDILOL
     Dosage: UNK
  5. AMLODIPINE BESYLATE [Concomitant]
     Active Substance: AMLODIPINE BESYLATE
     Dosage: UNK
  6. PANTOPRAZOLE SODIUM [Concomitant]
     Active Substance: PANTOPRAZOLE SODIUM
     Dosage: UNK
  7. LETROZOLE [Concomitant]
     Active Substance: LETROZOLE
     Dosage: UNK
  8. VITAMIN D NOS [Concomitant]
     Active Substance: CHOLECALCIFEROL\ERGOCALCIFEROL
     Dosage: UNK
  9. LOSARTAN POTASSIUM [Concomitant]
     Active Substance: LOSARTAN POTASSIUM
     Dosage: UNK
  10. FAMOTIDINE [Concomitant]
     Active Substance: FAMOTIDINE
     Dosage: UNK

REACTIONS (13)
  - Discomfort [Not Recovered/Not Resolved]
  - Diarrhoea [Not Recovered/Not Resolved]
  - Nausea [Not Recovered/Not Resolved]
  - Feeding disorder [Not Recovered/Not Resolved]
  - Fatigue [Unknown]
  - Decreased appetite [Unknown]
  - Insomnia [Not Recovered/Not Resolved]
  - Pruritus [Recovering/Resolving]
  - Back pain [Recovering/Resolving]
  - Arthralgia [Recovering/Resolving]
  - Rash [Recovering/Resolving]
  - Gastrooesophageal reflux disease [Unknown]
  - Product dose omission issue [Unknown]

NARRATIVE: CASE EVENT DATE: 20240301
